FAERS Safety Report 8432938-2 (Version None)
Quarter: 2012Q2

REPORT INFORMATION
  Report Type: 
  Country: None (occurrence: None)
  Receive Date: 20120323
  Receipt Date: 20111111
  Transmission Date: 20120825
  Serious: Yes (Hospitalization, Other)
  Sender: FDA-Public Use
  Company Number: 163-21880-11071759

PATIENT
  Age: 67 Year
  Sex: Male

DRUGS (7)
  1. THEO-DUR [Concomitant]
  2. AMBIEN [Concomitant]
  3. ALLEGRA [Concomitant]
  4. REVLIMID [Suspect]
     Indication: MULTIPLE MYELOMA
     Dosage: 10 MG, 1 IN 1 D, PO ; 15 MG, 1 IN 1 D, PO ; 10 MG, 1 IN 1 D, PO
     Route: 048
     Dates: start: 20100701
  5. REVLIMID [Suspect]
     Indication: MULTIPLE MYELOMA
     Dosage: 10 MG, 1 IN 1 D, PO ; 15 MG, 1 IN 1 D, PO ; 10 MG, 1 IN 1 D, PO
     Route: 048
     Dates: start: 20080901
  6. REVLIMID [Suspect]
     Indication: MULTIPLE MYELOMA
     Dosage: 10 MG, 1 IN 1 D, PO ; 15 MG, 1 IN 1 D, PO ; 10 MG, 1 IN 1 D, PO
     Route: 048
     Dates: start: 20110101
  7. ASPIRIN [Concomitant]

REACTIONS (3)
  - CONSTIPATION [None]
  - DIARRHOEA [None]
  - ACUTE MYOCARDIAL INFARCTION [None]
